FAERS Safety Report 7948453-6 (Version None)
Quarter: 2011Q4

REPORT INFORMATION
  Report Type: 
  Country: None (occurrence: None)
  Receive Date: 20111130
  Receipt Date: 20111125
  Transmission Date: 20120403
  Serious: Yes (Other)
  Sender: FDA-Public Use
  Company Number: IE-ASTELLAS-2011EU008670

PATIENT
  Age: 70 Year
  Sex: Female

DRUGS (6)
  1. CALCICHEW-D3 FORTE [Concomitant]
     Indication: OSTEOPOROSIS
     Dosage: UNK MG, BID
     Route: 048
  2. BISOPROLOL FUMARATE [Concomitant]
     Indication: HYPERTENSION
     Dosage: 5 MG, UNKNOWN/D
     Route: 048
  3. ATACAND [Concomitant]
     Indication: HYPERTENSION
     Dosage: 16 MG, UNKNOWN/D
     Route: 048
  4. ALLOPURINOL [Concomitant]
     Indication: GOUT
     Dosage: 100 MG, UNKNOWN/D
     Route: 048
  5. VESITIRIM [Suspect]
     Indication: HYPERTONIC BLADDER
     Dosage: 5 MG, UNKNOWN/D
     Route: 048
     Dates: start: 20111018, end: 20111018
  6. AMLODIPINE [Concomitant]
     Indication: HYPERTENSION
     Dosage: 5 MG, UNKNOWN/D
     Route: 048

REACTIONS (1)
  - CHEST DISCOMFORT [None]
